FAERS Safety Report 8196767-X (Version None)
Quarter: 2012Q1

REPORT INFORMATION
  Report Type: 
  Country: None (occurrence: None)
  Receive Date: 20120309
  Receipt Date: 20120301
  Transmission Date: 20120608
  Serious: Yes (Other)
  Sender: FDA-Public Use
  Company Number: PHEH2012US005224

PATIENT
  Sex: Female

DRUGS (6)
  1. PLAVIX [Concomitant]
     Dosage: 75 MG, UNK
  2. DIOVAN [Suspect]
     Dosage: 160 MG, DAILY
     Dates: start: 20110101, end: 20120227
  3. CARVEDILOL [Concomitant]
     Dosage: 12.5 UKN, UNK
  4. CLONIDINE [Concomitant]
     Dosage: 0.1 UKN, UNK
  5. GLUCOTROL XL [Concomitant]
     Dosage: 10 MG, UNK
  6. METFORMIN HCL [Concomitant]
     Dosage: 1000 UKN, UNK

REACTIONS (2)
  - CEREBROVASCULAR ACCIDENT [None]
  - BLOOD PRESSURE DECREASED [None]
